FAERS Safety Report 5009818-8 (Version None)
Quarter: 2006Q2

REPORT INFORMATION
  Report Type: 
  Country: None (occurrence: None)
  Receive Date: 20060522
  Receipt Date: 20060522
  Transmission Date: 20061013
  Serious: Yes (Life-Threatening, Hospitalization)
  Sender: FDA-Public Use
  Company Number: None

PATIENT
  Age: 42 Year
  Sex: Male

DRUGS (1)
  1. ERBITUX [Suspect]
     Dosage: IV DRIP   LD WAS INFUSING
     Route: 041

REACTIONS (7)
  - DYSKINESIA [None]
  - DYSPNOEA [None]
  - INFUSION RELATED REACTION [None]
  - LOSS OF CONSCIOUSNESS [None]
  - PRURITUS [None]
  - PULSE ABSENT [None]
  - VOMITING [None]
